FAERS Safety Report 8775989 (Version 1)
Quarter: 2012Q4

REPORT INFORMATION
  Report Type: Report from Study
  Country: GB (occurrence: GB)
  Receive Date: 20120910
  Receipt Date: 20120910
  Transmission Date: 20130627
  Serious: Yes (Life-Threatening, Hospitalization)
  Sender: FDA-Public Use
  Company Number: GB-NAPPMUNDI-GBR-2012-0011333

PATIENT
  Age: 59 Year
  Sex: Male

DRUGS (3)
  1. BUTRANS 20MG TRANSDERMAL PATCH [Suspect]
     Indication: PRODUCT USED FOR UNKNOWN INDICATION
     Dosage: 20 mcg, q1h
     Route: 062
     Dates: start: 20120329
  2. PREDNISOLONE [Concomitant]
     Dosage: 30 mg, daily
     Dates: start: 20120823
  3. CLARITHROMYCIN [Concomitant]
     Dosage: 500 mg, UNK
     Dates: start: 20120823

REACTIONS (1)
  - Pulmonary embolism [Not Recovered/Not Resolved]
